FAERS Safety Report 18438260 (Version 1)
Quarter: 2020Q4

REPORT INFORMATION
  Report Type: Spontaneous
  Country: FR (occurrence: FR)
  Receive Date: 20201028
  Receipt Date: 20201028
  Transmission Date: 20210114
  Serious: Yes (Other)
  Sender: FDA-Public Use
  Company Number: FR-MYLANLABS-2020M1090315

PATIENT
  Age: 57 Year
  Sex: Female

DRUGS (3)
  1. FLUANXOL LP [Suspect]
     Active Substance: FLUPENTIXOL DECANOATE
     Indication: AFFECTIVE DISORDER
     Dosage: UNK, ONCE IN 15 DAYS, 1 INJECTION OF 100 MG/ML EVERY 15 DAYS
     Route: 065
  2. FLUANXOL LP [Suspect]
     Active Substance: FLUPENTIXOL DECANOATE
     Indication: BEHAVIOUR DISORDER
     Dosage: 1 UNK, Q3W
     Route: 065
  3. LORAZEPAM. [Suspect]
     Active Substance: LORAZEPAM
     Indication: SLEEP DISORDER
     Dosage: UNK UNK, QD
     Route: 065

REACTIONS (7)
  - Headache [Unknown]
  - Pain in extremity [Recovered/Resolved]
  - Vomiting [Unknown]
  - Nausea [Recovered/Resolved]
  - Sleep disorder [Unknown]
  - Feeling abnormal [Recovered/Resolved]
  - Schizophrenia [Unknown]

NARRATIVE: CASE EVENT DATE: 20190712
